FAERS Safety Report 8354664-0 (Version None)
Quarter: 2012Q2

REPORT INFORMATION
  Report Type: 
  Country: None (occurrence: None)
  Receive Date: 20120511
  Receipt Date: 20111220
  Transmission Date: 20120825
  Serious: Yes (Other)
  Sender: FDA-Public Use
  Company Number: PHHY2011CA116488

PATIENT
  Sex: Female

DRUGS (1)
  1. DICLOFENAC [Suspect]
     Indication: ROTATOR CUFF SYNDROME
     Dosage: UNK UKN, UNK
     Route: 048
     Dates: start: 20090101

REACTIONS (1)
  - MULTIPLE SCLEROSIS RELAPSE [None]
